FAERS Safety Report 10672011 (Version 4)
Quarter: 2015Q1

REPORT INFORMATION
  Report Type: Spontaneous
  Country: US (occurrence: US)
  Receive Date: 20141223
  Receipt Date: 20150218
  Transmission Date: 20150720
  Serious: No
  Sender: FDA-Public Use
  Company Number: US-PFIZER INC-2014354774

PATIENT
  Sex: Male

DRUGS (1)
  1. ACIPHEX [Suspect]
     Active Substance: RABEPRAZOLE SODIUM

REACTIONS (4)
  - Intentional product misuse [Unknown]
  - Pain [Unknown]
  - Pain in extremity [Unknown]
  - Discomfort [Unknown]
